FAERS Safety Report 25225661 (Version 2)
Quarter: 2025Q2

REPORT INFORMATION
  Report Type: Spontaneous
  Country: PL (occurrence: PL)
  Receive Date: 20250422
  Receipt Date: 20250507
  Transmission Date: 20250716
  Serious: Yes (Hospitalization)
  Sender: NOVARTIS
  Company Number: PL-002147023-NVSC2025PL063603

PATIENT
  Sex: Female
  Weight: 59 kg

DRUGS (7)
  1. KESIMPTA [Suspect]
     Active Substance: OFATUMUMAB
     Indication: Multiple sclerosis
     Route: 058
     Dates: start: 20250203
  2. KESIMPTA [Suspect]
     Active Substance: OFATUMUMAB
     Route: 058
     Dates: start: 20250210
  3. KESIMPTA [Suspect]
     Active Substance: OFATUMUMAB
     Route: 058
     Dates: start: 20250216
  4. KESIMPTA [Suspect]
     Active Substance: OFATUMUMAB
     Route: 058
     Dates: start: 20250302
  5. KESIMPTA [Suspect]
     Active Substance: OFATUMUMAB
     Route: 058
     Dates: start: 20250401
  6. PREGABALIN [Concomitant]
     Active Substance: PREGABALIN
     Indication: Product used for unknown indication
     Route: 065
  7. CLONAZEPAM [Concomitant]
     Active Substance: CLONAZEPAM
     Indication: Product used for unknown indication
     Route: 065

REACTIONS (11)
  - Multiple sclerosis relapse [Not Recovered/Not Resolved]
  - Gait disturbance [Unknown]
  - Movement disorder [Unknown]
  - Muscle spasms [Recovering/Resolving]
  - Pain [Unknown]
  - Cardiac disorder [Unknown]
  - Feeling abnormal [Unknown]
  - Influenza [Recovered/Resolved]
  - Headache [Recovered/Resolved]
  - Myalgia [Recovered/Resolved]
  - Chills [Recovered/Resolved]

NARRATIVE: CASE EVENT DATE: 20250203
